FAERS Safety Report 24031052 (Version 1)
Quarter: 2024Q2

REPORT INFORMATION
  Report Type: Spontaneous
  Country: US (occurrence: US)
  Receive Date: 20240628
  Receipt Date: 20240628
  Transmission Date: 20240716
  Serious: Yes (Death, Hospitalization, Other)
  Sender: FDA-Public Use
  Company Number: US-ADMA BIOLOGICS INC.-US-2024ADM000091

PATIENT
  Age: 71 Year
  Sex: Female

DRUGS (4)
  1. HUMAN IMMUNOGLOBULIN G [Suspect]
     Active Substance: HUMAN IMMUNOGLOBULIN G
     Indication: Stevens-Johnson syndrome
     Dosage: UNK, UNK
     Route: 042
  2. HUMAN IMMUNOGLOBULIN G [Suspect]
     Active Substance: HUMAN IMMUNOGLOBULIN G
     Indication: Toxic epidermal necrolysis
  3. LISINOPRIL [Concomitant]
     Active Substance: LISINOPRIL
     Indication: Bronchitis
     Dosage: UNK, UNK
     Route: 065
  4. AZITHROMYCIN [Concomitant]
     Active Substance: AZITHROMYCIN
     Indication: Bronchitis
     Dosage: UNK, UNK
     Route: 065

REACTIONS (5)
  - Cardiac arrest [Fatal]
  - Bacteraemia [Unknown]
  - Urinary tract infection [Unknown]
  - Pneumonia bacterial [Unknown]
  - Off label use [Unknown]
